FAERS Safety Report 4567985-4 (Version None)
Quarter: 2005Q1

REPORT INFORMATION
  Report Type: 
  Country: None (occurrence: None)
  Receive Date: 20050128
  Receipt Date: 20050113
  Transmission Date: 20050727
  Serious: Yes (Hospitalization)
  Sender: FDA-Public Use
  Company Number: GBR-2005-0001465

PATIENT
  Age: 73 Year
  Sex: Male

DRUGS (12)
  1. OXYCONTIN [Suspect]
     Indication: PAIN
     Dosage: SEE IMAGE
     Route: 048
     Dates: end: 20041014
  2. OXYCONTIN [Suspect]
     Indication: PAIN
     Dosage: SEE IMAGE
     Route: 048
     Dates: start: 20041005
  3. GABAPENTIN [Concomitant]
  4. PRAVASTATIN [Concomitant]
  5. VENLAFAXINE HCL [Concomitant]
  6. HIDROXIZIN (HYDROXYZINE HYDROCHLORIDE) [Concomitant]
  7. LEVOMEPROMAZINE (LEVOMEPROMAZINE) [Concomitant]
  8. ACETAMINOPHEN [Concomitant]
  9. DIXYRAZINE (DIXYRAZINE) [Concomitant]
  10. ALPHACALCIDOL [Concomitant]
  11. FUROSEMIDE (FUROSEMIDE) [Concomitant]
  12. BACLOFEN [Concomitant]

REACTIONS (12)
  - BRONCHIAL OBSTRUCTION [None]
  - COMMUNICATION DISORDER [None]
  - CONFUSIONAL STATE [None]
  - DELUSION [None]
  - DIALYSIS [None]
  - DRUG LEVEL INCREASED [None]
  - FATIGUE [None]
  - HALLUCINATION [None]
  - HYPERTENSION [None]
  - MIOSIS [None]
  - RENAL IMPAIRMENT [None]
  - RESPIRATORY DEPRESSION [None]
